FAERS Safety Report 9678573 (Version 2)
Quarter: 2013Q4

REPORT INFORMATION
  Report Type: Spontaneous
  Country: AU (occurrence: AU)
  Receive Date: 20131108
  Receipt Date: 20131108
  Transmission Date: 20140711
  Serious: Yes (Disabling, Other)
  Sender: FDA-Public Use
  Company Number: AU-CELGENEUS-008-C4047-13052413

PATIENT
  Age: 60 Year
  Sex: Male

DRUGS (4)
  1. CC-4047 [Suspect]
     Indication: PLASMA CELL MYELOMA
     Dosage: 4 MILLIGRAM
     Route: 048
     Dates: start: 201301, end: 20130924
  2. DEXAMETHASONE [Concomitant]
     Indication: PLASMA CELL MYELOMA
     Route: 065
     Dates: start: 201301, end: 20130924
  3. RED BLOOD CELLS [Concomitant]
     Indication: PRODUCT USED FOR UNKNOWN INDICATION
     Route: 065
  4. VORINOSTAT [Concomitant]
     Indication: PLASMA CELL MYELOMA
     Route: 065
     Dates: start: 20130527

REACTIONS (3)
  - Hypercalcaemia [Recovered/Resolved]
  - Renal failure [Not Recovered/Not Resolved]
  - Plasma cell myeloma [Not Recovered/Not Resolved]
